FAERS Safety Report 10950183 (Version 1)
Quarter: 2015Q1

REPORT INFORMATION
  Report Type: Report from Study
  Country: BR (occurrence: BR)
  Receive Date: 20150324
  Receipt Date: 20150324
  Transmission Date: 20150721
  Serious: Yes (Other)
  Sender: FDA-Public Use
  Company Number: ALCN2014BR005906

PATIENT
  Sex: Female
  Weight: 55 kg

DRUGS (9)
  1. VITALUX PLUS [Suspect]
     Active Substance: VITAMINS
     Indication: NUTRITIONAL SUPPLEMENTATION
     Dosage: 2 DF (CAPSULES) BID
     Route: 048
  2. OLCADIL [Suspect]
     Active Substance: CLOXAZOLAM
     Indication: RELAXATION THERAPY
  3. OMEPRAZOLE. [Concomitant]
     Active Substance: OMEPRAZOLE
     Indication: GASTRIC DISORDER
     Dosage: 200 MG, PRN
     Route: 048
  4. VASODIPIN//AMLODIPINE BESILATE [Concomitant]
     Indication: CARDIOVASCULAR DISORDER
     Dosage: 30 MG, QD
  5. BAMIFIX [Concomitant]
     Active Substance: BAMIFYLLINE HYDROCHLORIDE
     Indication: LUNG DISORDER
     Dosage: 300 MG, QD
     Route: 048
  6. NUTREXIL FOLICO [Concomitant]
     Dosage: 1 DF, QD
     Route: 048
  7. ARCOXIA [Concomitant]
     Active Substance: ETORICOXIB
     Indication: PRODUCT USED FOR UNKNOWN INDICATION
     Dosage: 90 MG, UNK
     Route: 048
  8. ALCYTAM [Concomitant]
     Indication: RELAXATION THERAPY
     Dosage: 10 MG, UNK
     Route: 048
  9. OLCADIL [Suspect]
     Active Substance: CLOXAZOLAM
     Indication: SLEEP DISORDER
     Dosage: 1 DF, PRN
     Route: 048

REACTIONS (4)
  - Arthropathy [Recovered/Resolved]
  - Rib fracture [Recovered/Resolved]
  - Fall [Recovered/Resolved]
  - Pain [Recovered/Resolved]

NARRATIVE: CASE EVENT DATE: 20140920
